FAERS Safety Report 22047255 (Version 4)
Quarter: 2024Q4

REPORT INFORMATION
  Report Type: Spontaneous
  Country: US (occurrence: US)
  Receive Date: 20230301
  Receipt Date: 20241209
  Transmission Date: 20250114
  Serious: Yes (Other)
  Sender: BIOGEN
  Company Number: US-BIOGEN-2023BI01190016

PATIENT
  Sex: Female
  Weight: 96.248 kg

DRUGS (3)
  1. TYSABRI [Suspect]
     Active Substance: NATALIZUMAB
     Indication: Multiple sclerosis
     Dosage: INFUSED OVER 1 HOUR
     Route: 050
     Dates: start: 20211014, end: 20221021
  2. GABAPENTIN [Concomitant]
     Active Substance: GABAPENTIN
     Indication: Product used for unknown indication
     Dosage: TAKE 2 CAPSULE 3 TIMES DAILY;?THERAPY: 15APR2021 TO (EVALUATE:06NOV2024) REQUESTED FOR: 08AUG2024...
     Route: 050
     Dates: start: 20210415
  3. ERGOCALCIFEROL [Concomitant]
     Active Substance: ERGOCALCIFEROL
     Indication: Product used for unknown indication
     Dosage: TAKE 1 CAPSULE BY MOUTH WEEKLY;?THERAPY: 01OCT2021 TO (EVALUATE: 12DEC2024) REQUESTED FOR: 27JUN2...
     Route: 050
     Dates: start: 20211001

REACTIONS (3)
  - Uterine cancer [Unknown]
  - Pulmonary mass [Unknown]
  - Ovarian cyst [Unknown]
